FAERS Safety Report 9935623 (Version 1)
Quarter: 2014Q1

REPORT INFORMATION
  Report Type: Spontaneous
  Country: DK (occurrence: DK)
  Receive Date: 20140228
  Receipt Date: 20140228
  Transmission Date: 20141002
  Serious: Yes (Hospitalization)
  Sender: FDA-Public Use
  Company Number: PHHY2014DK020387

PATIENT
  Age: 27 Year
  Sex: Female

DRUGS (4)
  1. DICLON [Suspect]
     Indication: PAIN
     Dates: start: 200604, end: 201009
  2. IBUMETIN [Suspect]
     Indication: PAIN
     Dates: start: 200604, end: 201009
  3. BRUFEN ^ABBOTT^ [Suspect]
     Indication: PAIN
     Dates: start: 200604, end: 201009
  4. SERACTIV [Suspect]
     Indication: PAIN
     Dates: start: 200604, end: 201009

REACTIONS (6)
  - Gastroenteritis [Recovered/Resolved]
  - Appendix disorder [Recovered/Resolved]
  - Intestinal resection [Recovered/Resolved]
  - Ileal ulcer [Recovered/Resolved]
  - Abdominal pain [Recovering/Resolving]
  - Colitis [Recovered/Resolved]
